FAERS Safety Report 19405153 (Version 1)
Quarter: 2021Q2

REPORT INFORMATION
  Report Type: Other
  Country: US (occurrence: US)
  Receive Date: 20210611
  Receipt Date: 20210611
  Transmission Date: 20210717
  Serious: Yes (Other)
  Sender: FDA-Public Use
  Company Number: US-ROCHE-2843683

PATIENT
  Age: 58 Year
  Sex: Female
  Weight: 55.84 kg

DRUGS (3)
  1. MODAFINIL. [Concomitant]
     Active Substance: MODAFINIL
     Indication: FATIGUE
  2. OCREVUS [Suspect]
     Active Substance: OCRELIZUMAB
     Indication: MULTIPLE SCLEROSIS RELAPSE
     Dosage: DATE OF TREATMENT: 18/SEP/2018, 02/OCT/2018, 02/APR/2019, 30/OCT/2019, 05/MAY/2020, 20/OCT/2020, 03/
     Route: 042
     Dates: start: 201809
  3. ATORVASTATIN [Concomitant]
     Active Substance: ATORVASTATIN
     Indication: BLOOD CHOLESTEROL INCREASED
     Route: 048
     Dates: start: 2020

REACTIONS (4)
  - Neutrophil count decreased [Unknown]
  - White blood cell count abnormal [Unknown]
  - Lymphocyte count decreased [Unknown]
  - JC polyomavirus test positive [Unknown]

NARRATIVE: CASE EVENT DATE: 20210430
